FAERS Safety Report 20759504 (Version 2)
Quarter: 2022Q2

REPORT INFORMATION
  Report Type: Spontaneous
  Country: US (occurrence: US)
  Receive Date: 20220427
  Receipt Date: 20220623
  Transmission Date: 20220720
  Serious: No
  Sender: FDA-Public Use
  Company Number: US-BioHaven Pharmaceuticals-2022BHV000529

PATIENT
  Age: 38 Year
  Sex: Male
  Weight: 82.628 kg

DRUGS (1)
  1. NURTEC ODT [Suspect]
     Active Substance: RIMEGEPANT SULFATE
     Indication: Migraine
     Route: 065
     Dates: end: 20220131

REACTIONS (2)
  - Tremor [Recovered/Resolved]
  - Drug ineffective [Not Recovered/Not Resolved]
